FAERS Safety Report 5476403-3 (Version None)
Quarter: 2007Q4

REPORT INFORMATION
  Report Type: 
  Country: None (occurrence: None)
  Receive Date: 20071003
  Receipt Date: 20070924
  Transmission Date: 20080405
  Serious: Yes (Other)
  Sender: FDA-Public Use
  Company Number: GB-PFIZER INC-2007079888

PATIENT
  Age: 54 Year
  Sex: Female
  Weight: 73 kg

DRUGS (3)
  1. AMLODIPINE [Suspect]
     Indication: HYPERTENSION
     Route: 048
     Dates: start: 20070615, end: 20070801
  2. COZAAR [Concomitant]
     Indication: HYPERTENSION
     Route: 048
  3. CARBO-DOME [Concomitant]
     Indication: PSORIASIS
     Route: 061

REACTIONS (2)
  - PRURITUS [None]
  - PSORIASIS [None]
